FAERS Safety Report 7068510-9 (Version None)
Quarter: 2010Q4

REPORT INFORMATION
  Report Type: 
  Country: None (occurrence: None)
  Receive Date: 20101028
  Receipt Date: 20101025
  Transmission Date: 20110411
  Serious: Yes (Hospitalization)
  Sender: FDA-Public Use
  Company Number: FR-ROCHE-736213

PATIENT
  Sex: Male

DRUGS (3)
  1. ROCEPHIN [Suspect]
     Indication: PRODUCT USED FOR UNKNOWN INDICATION
     Dosage: FORM: POWDER FOR INJECTABLE SOLUTION, INFUSION
     Route: 042
     Dates: start: 20100909, end: 20100911
  2. OFLOCET [Suspect]
     Indication: PRODUCT USED FOR UNKNOWN INDICATION
     Dosage: INJECTABLE SOLUTION FOR INFUSION; STRENGTH: 200 MG/40 ML
     Route: 042
     Dates: start: 20100909, end: 20100911
  3. KARDEGIC [Concomitant]
     Dosage: POWDER FOR ORAL SOLUTION, SACHET
     Route: 048
     Dates: start: 20100909, end: 20100910

REACTIONS (1)
  - LOSS OF CONSCIOUSNESS [None]
